FAERS Safety Report 9905387 (Version 1)
Quarter: 2014Q1

REPORT INFORMATION
  Report Type: Spontaneous
  Country: DK (occurrence: DK)
  Receive Date: 20140218
  Receipt Date: 20140218
  Transmission Date: 20141002
  Serious: Yes (Congenital Anomaly)
  Sender: FDA-Public Use
  Company Number: DK-PFIZER INC-2014042238

PATIENT
  Sex: Male

DRUGS (1)
  1. MINPROSTIN [Suspect]
     Indication: INDUCED LABOUR
     Dosage: 3 MG, 1X/DAY
     Route: 064
     Dates: start: 20140127

REACTIONS (3)
  - Foetal exposure during pregnancy [Recovered/Resolved]
  - Heart sounds abnormal [Recovered/Resolved]
  - Blood pH decreased [Recovered/Resolved]
